FAERS Safety Report 7951850-6 (Version None)
Quarter: 2011Q4

REPORT INFORMATION
  Report Type: 
  Country: None (occurrence: None)
  Receive Date: 20111201
  Receipt Date: 20110318
  Transmission Date: 20120403
  Serious: Yes (Other)
  Sender: FDA-Public Use
  Company Number: ES-ROCHE-1017774

PATIENT
  Age: 82 Year
  Sex: Female

DRUGS (2)
  1. RANIBIZUMAB [Suspect]
     Indication: AGE-RELATED MACULAR DEGENERATION
     Route: 050
  2. INFLIXIMAB [Concomitant]

REACTIONS (2)
  - VISUAL ACUITY REDUCED [None]
  - RETINAL OEDEMA [None]
